FAERS Safety Report 4409938-2 (Version None)
Quarter: 2004Q3

REPORT INFORMATION
  Report Type: 
  Country: None (occurrence: None)
  Receive Date: 20040728
  Receipt Date: 20040723
  Transmission Date: 20050211
  Serious: Yes (Hospitalization)
  Sender: FDA-Public Use
  Company Number: FR-GLAXOSMITHKLINE-B0340432A

PATIENT
  Age: 48 Year
  Sex: Male

DRUGS (6)
  1. COMBIVIR [Suspect]
     Indication: HIV INFECTION
     Route: 048
     Dates: start: 20010901, end: 20011129
  2. BACTRIM [Concomitant]
     Dosage: 1UNIT PER DAY
     Route: 048
  3. RIVOTRIL [Concomitant]
     Dosage: 2MG PER DAY
     Route: 048
  4. LEXOMIL [Concomitant]
     Route: 048
  5. CRIXIVAN [Concomitant]
     Indication: HIV INFECTION
     Route: 048
     Dates: start: 20000810
  6. LIPANOR [Concomitant]
     Indication: HYPERCHOLESTEROLAEMIA
     Route: 048

REACTIONS (4)
  - APLASTIC ANAEMIA [None]
  - DYSPNOEA EXERTIONAL [None]
  - FOLATE DEFICIENCY [None]
  - PALPITATIONS [None]
